FAERS Safety Report 7620506-1 (Version None)
Quarter: 2011Q3

REPORT INFORMATION
  Report Type: 
  Country: None (occurrence: None)
  Receive Date: 20110719
  Receipt Date: 20110713
  Transmission Date: 20111222
  Serious: Yes (Hospitalization)
  Sender: FDA-Public Use
  Company Number: US-GLAXOSMITHKLINE-A0936675A

PATIENT
  Sex: Female

DRUGS (2)
  1. ARZERRA [Suspect]
     Indication: CHRONIC LYMPHOCYTIC LEUKAEMIA
     Dosage: 300MG SINGLE DOSE
     Route: 042
     Dates: start: 20110501, end: 20110501
  2. NO CONCURRENT MEDICATION [Concomitant]

REACTIONS (4)
  - CONDITION AGGRAVATED [None]
  - ANOSMIA [None]
  - DYSPNOEA [None]
  - PULMONARY TOXICITY [None]
